FAERS Safety Report 21296942 (Version 1)
Quarter: 2022Q3

REPORT INFORMATION
  Report Type: Spontaneous
  Country: US (occurrence: None)
  Receive Date: 20220902
  Receipt Date: 20220902
  Transmission Date: 20221027
  Serious: Yes (Hospitalization)
  Sender: FDA-Public Use
  Company Number: None

PATIENT
  Age: 63 Year
  Sex: Male

DRUGS (1)
  1. RIVAROXABAN [Suspect]
     Active Substance: RIVAROXABAN
     Indication: Supraventricular tachycardia
     Dates: start: 20220718, end: 20220801

REACTIONS (4)
  - Syncope [None]
  - Fall [None]
  - Head injury [None]
  - Therapy change [None]

NARRATIVE: CASE EVENT DATE: 20220801
